FAERS Safety Report 19572269 (Version 8)
Quarter: 2021Q4

REPORT INFORMATION
  Report Type: Report from Study
  Country: CN (occurrence: None)
  Receive Date: 20210716
  Receipt Date: 20211124
  Transmission Date: 20220303
  Serious: Yes (Hospitalization)
  Sender: FDA-Public Use
  Company Number: CN-EISAI MEDICAL RESEARCH-EC-2021-096148

PATIENT
  Age: 69 Year
  Sex: Male
  Weight: 53 kg

DRUGS (14)
  1. LENVATINIB [Suspect]
     Active Substance: LENVATINIB
     Indication: Hepatocellular carcinoma
     Dosage: STARTING DOSE AT 12 MILLIGRAM, FLUCTUATED DOSAGE
     Route: 048
     Dates: start: 20191025, end: 20191226
  2. LENVATINIB [Suspect]
     Active Substance: LENVATINIB
     Route: 048
     Dates: start: 20200102, end: 2021
  3. PLACEBO [Suspect]
     Active Substance: UNSPECIFIED INGREDIENT
     Indication: Hepatocellular carcinoma
     Route: 042
     Dates: start: 20191025, end: 20210129
  4. PLACEBO [Suspect]
     Active Substance: UNSPECIFIED INGREDIENT
     Route: 042
     Dates: start: 20210219, end: 20210219
  5. TENOFOVIR [Concomitant]
     Active Substance: TENOFOVIR
     Dates: start: 20190930
  6. BENAZEPRIL [Concomitant]
     Active Substance: BENAZEPRIL HYDROCHLORIDE
     Dates: start: 20191101
  7. LEVOTHYROXINE SODIUM [Concomitant]
     Active Substance: LEVOTHYROXINE SODIUM
     Dates: start: 20200617
  8. ETORICOXIB [Concomitant]
     Active Substance: ETORICOXIB
     Dates: start: 20201126
  9. ISONIAZID [Concomitant]
     Active Substance: ISONIAZID
     Dates: start: 20210324, end: 20210715
  10. ETHAMBUTOL [Concomitant]
     Active Substance: ETHAMBUTOL HYDROCHLORIDE
     Dates: start: 20210324, end: 20210715
  11. PYRAZINAMIDE [Concomitant]
     Active Substance: PYRAZINAMIDE
     Dates: start: 20210326, end: 20210715
  12. FUROSEMIDE [Concomitant]
     Active Substance: FUROSEMIDE
     Dates: start: 20210501
  13. BICYCLOL [Concomitant]
     Active Substance: BICYCLOL
     Dates: start: 20210411, end: 20210801
  14. RIFAMPIN [Concomitant]
     Active Substance: RIFAMPIN
     Dates: start: 20210411, end: 20210715

REACTIONS (2)
  - Dysphagia [Recovered/Resolved]
  - Fatigue [Recovered/Resolved]

NARRATIVE: CASE EVENT DATE: 20210705
